FAERS Safety Report 4452791-1 (Version None)
Quarter: 2004Q3

REPORT INFORMATION
  Report Type: 
  Country: None (occurrence: None)
  Receive Date: 20040916
  Receipt Date: 20040910
  Transmission Date: 20050211
  Serious: Yes (Life-Threatening, Hospitalization)
  Sender: FDA-Public Use
  Company Number: 2004-120153-NL

PATIENT
  Age: 40 Year
  Sex: Male

DRUGS (6)
  1. MIRTAZAPINE [Suspect]
     Indication: DEPRESSION
     Dosage: 60 MG ORAL
     Route: 048
     Dates: start: 19900101, end: 20040816
  2. PEGINTERFERON ALFA-2B [Suspect]
     Indication: HEPATITIS C
     Dosage: 100 UG SUBCUTANEOUS
     Route: 058
     Dates: start: 20040218, end: 20040811
  3. RIBAVIRIN [Suspect]
     Indication: HEPATITIS C
     Dosage: 1000 MG ORAL
     Route: 048
     Dates: start: 20040218, end: 20040816
  4. METHADONE HCL [Suspect]
     Dosage: 80 MG ORAL
     Route: 048
     Dates: start: 19970101, end: 20040816
  5. VALPROMIDE [Suspect]
     Indication: DEPRESSION
     Dosage: DF ORAL
     Route: 048
     Dates: start: 19900101, end: 20040816
  6. CLONAZEPAM [Suspect]
     Indication: DEPRESSION
     Dosage: DF ORAL
     Route: 048
     Dates: start: 19900101, end: 20040816

REACTIONS (3)
  - COMA [None]
  - POLYTRAUMATISM [None]
  - SUICIDE ATTEMPT [None]
